FAERS Safety Report 8287915-1 (Version None)
Quarter: 2012Q2

REPORT INFORMATION
  Report Type: 
  Country: None (occurrence: None)
  Receive Date: 20120416
  Receipt Date: 20120413
  Transmission Date: 20120825
  Serious: Yes (Life-Threatening, Hospitalization)
  Sender: FDA-Public Use
  Company Number: DZ-BRISTOL-MYERS SQUIBB COMPANY-16270993

PATIENT
  Age: 34 Year
  Sex: Female

DRUGS (2)
  1. ABILIFY [Suspect]
     Indication: SCHIZOPHRENIA, PARANOID TYPE
     Route: 048
     Dates: start: 20110828, end: 20111127
  2. TRANXENE [Concomitant]
     Indication: AGITATION

REACTIONS (3)
  - PSYCHOTIC DISORDER [None]
  - SUICIDAL IDEATION [None]
  - DEPRESSIVE SYMPTOM [None]
